FAERS Safety Report 8545688-9 (Version None)
Quarter: 2012Q3

REPORT INFORMATION
  Report Type: 
  Country: None (occurrence: None)
  Receive Date: 20120727
  Receipt Date: 20120127
  Transmission Date: 20120928
  Serious: Yes (Other)
  Sender: FDA-Public Use
  Company Number: CHPA2012US013939

PATIENT
  Age: 75 Year
  Sex: Female

DRUGS (1)
  1. GAS-X [Suspect]
     Indication: FLATULENCE
     Dosage: UNK, UNK
     Route: 048
     Dates: start: 20110101

REACTIONS (4)
  - GASTRITIS [None]
  - ABDOMINAL PAIN UPPER [None]
  - RECTAL HAEMORRHAGE [None]
  - MUSCLE SPASMS [None]
